FAERS Safety Report 14076489 (Version 2)
Quarter: 2017Q4

REPORT INFORMATION
  Report Type: Spontaneous
  Country: US (occurrence: US)
  Receive Date: 20171011
  Receipt Date: 20171106
  Transmission Date: 20180321
  Serious: Yes (Death, Other)
  Sender: FDA-Public Use
  Company Number: US-INCYTE CORPORATION-2017IN008488

PATIENT

DRUGS (2)
  1. JADENU [Concomitant]
     Active Substance: DEFERASIROX
     Indication: BLOOD IRON INCREASED
  2. JAKAFI [Suspect]
     Active Substance: RUXOLITINIB
     Indication: ACUTE MYELOID LEUKAEMIA
     Dosage: 10 MG, BID
     Route: 048
     Dates: start: 201610

REACTIONS (2)
  - Off label use [Unknown]
  - Death [Fatal]

NARRATIVE: CASE EVENT DATE: 201610
